FAERS Safety Report 22090169 (Version 1)
Quarter: 2023Q1

REPORT INFORMATION
  Report Type: Spontaneous
  Country: US (occurrence: US)
  Receive Date: 20230313
  Receipt Date: 20230313
  Transmission Date: 20230418
  Serious: No
  Sender: FDA-Public Use
  Company Number: US-GLAXOSMITHKLINE-USCH2023010710

PATIENT
  Sex: Male

DRUGS (1)
  1. ADVIL PM [Suspect]
     Active Substance: DIPHENHYDRAMINE CITRATE\IBUPROFEN
     Indication: Product used for unknown indication
     Dosage: 30 DF
     Dates: start: 20230309, end: 20230309

REACTIONS (4)
  - Chest pain [Unknown]
  - Asthenia [Unknown]
  - Dysstasia [Unknown]
  - Overdose [Unknown]

NARRATIVE: CASE EVENT DATE: 20230309
